FAERS Safety Report 10833044 (Version 1)
Quarter: 2015Q1

REPORT INFORMATION
  Report Type: Report from Study
  Country: US (occurrence: US)
  Receive Date: 20150219
  Receipt Date: 20150219
  Transmission Date: 20150721
  Serious: No
  Sender: FDA-Public Use
  Company Number: US-ABBVIE-14P-163-1196993-00

PATIENT
  Age: 26 Year
  Sex: Female

DRUGS (5)
  1. HYDROCODONE [Concomitant]
     Active Substance: HYDROCODONE
     Indication: RHEUMATOID ARTHRITIS
  2. HUMIRA [Suspect]
     Active Substance: ADALIMUMAB
     Indication: RHEUMATOID ARTHRITIS
     Dates: start: 20131104, end: 20140113
  3. HYDROXYCHLOROQUINE [Concomitant]
     Active Substance: HYDROXYCHLOROQUINE
     Indication: RHEUMATOID ARTHRITIS
  4. ABILIFY [Concomitant]
     Active Substance: ARIPIPRAZOLE
     Indication: DEPRESSION
  5. LEFLUNOMIDE. [Concomitant]
     Active Substance: LEFLUNOMIDE
     Indication: RHEUMATOID ARTHRITIS

REACTIONS (2)
  - Arthropathy [Not Recovered/Not Resolved]
  - Abdominal discomfort [Not Recovered/Not Resolved]

NARRATIVE: CASE EVENT DATE: 20131104
